FAERS Safety Report 7907507-0 (Version None)
Quarter: 2011Q4

REPORT INFORMATION
  Report Type: 
  Country: None (occurrence: None)
  Receive Date: 20111110
  Receipt Date: 20111031
  Transmission Date: 20120403
  Serious: Yes (Hospitalization)
  Sender: FDA-Public Use
  Company Number: US-BAYER-201031823NA

PATIENT
  Age: 28 Year
  Sex: Female
  Weight: 120 kg

DRUGS (9)
  1. PERIACTIN [Concomitant]
     Dosage: 4 MG, TID
     Route: 048
  2. ULTRACET [Concomitant]
     Indication: PELVIC PAIN
     Route: 048
  3. OXYCODONE HCL AND ACETAMINOPHEN [Concomitant]
     Dosage: UNK
     Route: 048
     Dates: start: 20061202
  4. AMOXICILLIN [Concomitant]
     Dosage: 500 MG, TID
     Route: 048
     Dates: start: 20070125
  5. BUTORPHANOL TARATRATE [Concomitant]
     Dosage: UNK
     Route: 048
     Dates: start: 20060216
  6. YASMIN [Suspect]
     Indication: ORAL CONTRACEPTION
     Dosage: UNK
     Route: 048
     Dates: start: 20061101, end: 20070301
  7. TOPAMAX [Concomitant]
     Indication: MIGRAINE
     Dosage: 150 MG, BID
     Route: 048
     Dates: start: 20060410, end: 20070313
  8. HISTUSSIN HC [Concomitant]
     Dosage: UNK
     Route: 048
     Dates: start: 20070125
  9. FLEXERIL [Concomitant]
     Dosage: 10 MG, TID
     Route: 048
     Dates: start: 20070213

REACTIONS (3)
  - DEPRESSION [None]
  - DEEP VEIN THROMBOSIS [None]
  - ANXIETY [None]
